FAERS Safety Report 6474811-5 (Version None)
Quarter: 2009Q4

REPORT INFORMATION
  Report Type: 
  Country: None (occurrence: None)
  Receive Date: 20091130
  Receipt Date: 20091112
  Transmission Date: 20100525
  Serious: Yes (Death, Hospitalization)
  Sender: FDA-Public Use
  Company Number: DE-1171529

PATIENT
  Age: 89 Year
  Sex: Male

DRUGS (4)
  1. FLUORESCITE [Suspect]
     Indication: MACULAR DEGENERATION
     Dosage: 5 ML IV OVER 25 SEC INTRAVENOUS BOLUS
     Route: 040
     Dates: start: 20091109, end: 20091109
  2. RAMIPRIL [Concomitant]
  3. LERCANIDIPINE [Concomitant]
  4. ASPIRIN [Concomitant]

REACTIONS (17)
  - AORTIC ANEURYSM [None]
  - AORTIC VALVE DISEASE [None]
  - BILE DUCT STONE [None]
  - BLOOD CHOLESTEROL INCREASED [None]
  - BLOOD HOMOCYSTEINE INCREASED [None]
  - BLOOD PRESSURE INCREASED [None]
  - CHOLELITHIASIS [None]
  - CHOROIDAL DETACHMENT [None]
  - CORONARY ARTERY DISEASE [None]
  - DECREASED APPETITE [None]
  - EXTRASYSTOLES [None]
  - HYPERHOMOCYSTEINAEMIA [None]
  - NAUSEA [None]
  - PERIPHERAL ARTERIAL OCCLUSIVE DISEASE [None]
  - PNEUMONIA ASPIRATION [None]
  - RENAL CYST [None]
  - VISUAL ACUITY REDUCED [None]
